FAERS Safety Report 15856715 (Version 2)
Quarter: 2019Q1

REPORT INFORMATION
  Report Type: Spontaneous
  Country: FR (occurrence: FR)
  Receive Date: 20190123
  Receipt Date: 20190205
  Transmission Date: 20190417
  Serious: Yes (Hospitalization)
  Sender: FDA-Public Use
  Company Number: FR-TEVA-2019-FR-999502

PATIENT
  Age: 80 Year
  Sex: Female

DRUGS (6)
  1. PREDNISOLONE. [Suspect]
     Active Substance: PREDNISOLONE
     Indication: PYREXIA
  2. AMOXICILLIN. [Suspect]
     Active Substance: AMOXICILLIN
     Indication: GENERAL PHYSICAL HEALTH DETERIORATION
     Route: 065
  3. PREDNISOLONE. [Suspect]
     Active Substance: PREDNISOLONE
     Indication: GENERAL PHYSICAL HEALTH DETERIORATION
     Route: 065
  4. AMOXICILLIN. [Suspect]
     Active Substance: AMOXICILLIN
     Indication: PYREXIA
  5. AMOXICILLIN. [Suspect]
     Active Substance: AMOXICILLIN
     Indication: ABDOMINAL PAIN
  6. PREDNISOLONE. [Suspect]
     Active Substance: PREDNISOLONE
     Indication: ABDOMINAL PAIN

REACTIONS (1)
  - Drug ineffective [Unknown]
